FAERS Safety Report 13263711 (Version 3)
Quarter: 2017Q3

REPORT INFORMATION
  Report Type: Report from Study
  Country: US (occurrence: US)
  Receive Date: 20170223
  Receipt Date: 20170810
  Transmission Date: 20171127
  Serious: Yes (Hospitalization)
  Sender: FDA-Public Use
  Company Number: US-BIOGEN-2017BI00358231

PATIENT
  Age: 35 Year
  Sex: Male

DRUGS (1)
  1. TYSABRI [Suspect]
     Active Substance: NATALIZUMAB
     Indication: MULTIPLE SCLEROSIS
     Route: 065
     Dates: start: 20161208

REACTIONS (2)
  - Pulmonary embolism [Not Recovered/Not Resolved]
  - Peripheral embolism [Not Recovered/Not Resolved]

NARRATIVE: CASE EVENT DATE: 20170202
